FAERS Safety Report 11063928 (Version 2)
Quarter: 2015Q2

REPORT INFORMATION
  Report Type: Report from Study
  Country: FR (occurrence: FR)
  Receive Date: 20150424
  Receipt Date: 20150527
  Transmission Date: 20150821
  Serious: Yes (Death, Hospitalization, Other)
  Sender: FDA-Public Use
  Company Number: FR-ASTELLAS-2015EU006048

PATIENT
  Age: 66 Year
  Sex: Male

DRUGS (8)
  1. PARACETAMOL [Concomitant]
     Active Substance: ACETAMINOPHEN
     Indication: PAIN
     Dosage: 3 G/DAILY
     Route: 065
     Dates: start: 20150227
  2. ENZALUTAMIDE [Suspect]
     Active Substance: ENZALUTAMIDE
     Indication: PROSTATE CANCER
     Dosage: 160 MG/DAILY
     Route: 048
     Dates: start: 20141110, end: 20141209
  3. FENTANYL. [Concomitant]
     Active Substance: FENTANYL
     Indication: PAIN
     Route: 062
     Dates: start: 20141210, end: 20141226
  4. FENTANYL. [Concomitant]
     Active Substance: FENTANYL
     Dosage: 50(UNITS UNKNOWN), UNKNOWN FREQ.
     Route: 062
     Dates: start: 20150205, end: 20150407
  5. PANTOPRAZOLE [Concomitant]
     Active Substance: PANTOPRAZOLE SODIUM
     Indication: GASTRIC DISORDER
     Dosage: UNK DAILY, UNKNOWN FREQ.
     Route: 048
     Dates: start: 201504
  6. PREDNISOLONE. [Concomitant]
     Active Substance: PREDNISOLONE
     Indication: ANTIINFLAMMATORY THERAPY
     Dosage: 80 MG/DAILY
     Route: 065
     Dates: start: 2015
  7. CLOMIPRAMINE                       /00116802/ [Concomitant]
     Indication: DEPRESSION
     Dosage: 25 MG/DAILY
     Route: 065
     Dates: start: 201502
  8. CLORAZEPATE DIPOTASSIUM. [Concomitant]
     Active Substance: CLORAZEPATE DIPOTASSIUM
     Indication: ANXIETY
     Dosage: 10 MG/DAILY
     Route: 048
     Dates: start: 201504

REACTIONS (4)
  - Malignant neoplasm progression [Fatal]
  - Diplegia [Fatal]
  - Spinal cord compression [Fatal]
  - Back pain [Fatal]

NARRATIVE: CASE EVENT DATE: 201504
